FAERS Safety Report 15995964 (Version 1)
Quarter: 2019Q1

REPORT INFORMATION
  Report Type: Spontaneous
  Country: US (occurrence: US)
  Receive Date: 20190222
  Receipt Date: 20190222
  Transmission Date: 20190418
  Serious: Yes (Other)
  Sender: FDA-Public Use
  Company Number: US-REGENERON PHARMACEUTICALS, INC.-2019-18362

PATIENT

DRUGS (1)
  1. EYLEA [Suspect]
     Active Substance: AFLIBERCEPT
     Indication: MACULAR DEGENERATION
     Dosage: RIGHT EYE (OD)
     Route: 031

REACTIONS (4)
  - Laser therapy [Unknown]
  - Drug ineffective [Unknown]
  - Cardiac pacemaker insertion [Unknown]
  - Product dose omission [Unknown]

NARRATIVE: CASE EVENT DATE: 20190208
